FAERS Safety Report 8345025-9 (Version None)
Quarter: 2012Q2

REPORT INFORMATION
  Report Type: 
  Country: None (occurrence: None)
  Receive Date: 20120508
  Receipt Date: 20120425
  Transmission Date: 20120825
  Serious: Yes (Other)
  Sender: FDA-Public Use
  Company Number: JP-VERTEX PHARMACEUTICALS INC.-AE-2012-006171

PATIENT
  Age: 60 Year
  Sex: Male

DRUGS (16)
  1. TELAVIC (TELAPREVIR) [Suspect]
     Route: 048
     Dates: start: 20120411, end: 20120412
  2. PEGASYS [Concomitant]
     Indication: HEPATITIS C
     Route: 058
     Dates: start: 20120302, end: 20120323
  3. RIBAVIRIN [Concomitant]
     Route: 048
     Dates: start: 20120402, end: 20120410
  4. PEGASYS [Concomitant]
     Route: 058
     Dates: start: 20120329, end: 20120329
  5. RIBAVIRIN [Concomitant]
     Indication: HEPATITIS C
     Route: 048
     Dates: start: 20120302
  6. ALLEGRA [Concomitant]
     Route: 048
     Dates: start: 20120302, end: 20120412
  7. GASMOTIN [Concomitant]
     Route: 048
     Dates: start: 20120302
  8. RIBAVIRIN [Concomitant]
     Route: 048
     Dates: start: 20120329, end: 20120331
  9. RIBAVIRIN [Concomitant]
     Route: 048
     Dates: start: 20120330, end: 20120401
  10. RIBAVIRIN [Concomitant]
  11. TELAVIC (TELAPREVIR) [Suspect]
     Indication: HEPATITIS C
     Route: 048
     Dates: start: 20120302, end: 20120410
  12. BENIDIPINE HYDROCHLORIDE [Concomitant]
     Route: 048
     Dates: start: 20120302
  13. ENALAPRIL MALEATE [Concomitant]
     Route: 048
     Dates: start: 20120302
  14. PEGASYS [Concomitant]
     Route: 058
     Dates: start: 20120407, end: 20120412
  15. RIBAVIRIN [Concomitant]
     Route: 048
     Dates: start: 20120326, end: 20120328
  16. VOGLIBOSE [Concomitant]
     Dates: start: 20120302

REACTIONS (4)
  - RETINOPATHY [None]
  - HYPERURICAEMIA [None]
  - HAEMOGLOBIN DECREASED [None]
  - BLOOD GLUCOSE INCREASED [None]
